FAERS Safety Report 4719064-0 (Version None)
Quarter: 2005Q3

REPORT INFORMATION
  Report Type: 
  Country: None (occurrence: None)
  Receive Date: 20050719
  Receipt Date: 20050706
  Transmission Date: 20060218
  Serious: Yes (Hospitalization)
  Sender: FDA-Public Use
  Company Number: 200510399BFR

PATIENT
  Age: 76 Year
  Sex: Male

DRUGS (3)
  1. IZILOX (MOXIFLOXACIN HYDROCHLORIDE) [Suspect]
     Dosage: ORAL
     Route: 048
  2. CARBOCISTEINE [Suspect]
     Dosage: ORAL
     Route: 048
  3. EFFERALGAN VITAMINE C [Suspect]
     Dosage: ORAL
     Route: 048

REACTIONS (1)
  - DRUG ERUPTION [None]
